FAERS Safety Report 15663805 (Version 1)
Quarter: 2018Q4

REPORT INFORMATION
  Report Type: Spontaneous
  Country: RU (occurrence: RU)
  Receive Date: 20181128
  Receipt Date: 20181128
  Transmission Date: 20190205
  Serious: Yes (Other)
  Sender: FDA-Public Use
  Company Number: RU-TEVA-2018-RU-979635

PATIENT
  Age: 73 Year
  Sex: Female

DRUGS (2)
  1. LOSARTAN TEVA [Suspect]
     Active Substance: LOSARTAN
     Dosage: 50 MILLIGRAM DAILY;
     Dates: start: 20181119
  2. EGILOK (METOPROLOL) [Concomitant]

REACTIONS (1)
  - Hypertension [Recovered/Resolved]

NARRATIVE: CASE EVENT DATE: 20181119
